FAERS Safety Report 20558105 (Version 1)
Quarter: 2022Q1

REPORT INFORMATION
  Report Type: Report from Study
  Country: US (occurrence: US)
  Receive Date: 20220307
  Receipt Date: 20220307
  Transmission Date: 20220423
  Serious: Yes (Other)
  Sender: FDA-Public Use
  Company Number: US-JAZZ-2022-US-005793

PATIENT
  Sex: Female

DRUGS (18)
  1. XYREM [Suspect]
     Active Substance: SODIUM OXYBATE
     Indication: Narcolepsy
     Dosage: 5 GRAM, BID
     Route: 048
  2. XYREM [Suspect]
     Active Substance: SODIUM OXYBATE
     Indication: Cataplexy
  3. XYREM [Suspect]
     Active Substance: SODIUM OXYBATE
     Indication: Somnolence
  4. CLONAZEPAM [Concomitant]
     Active Substance: CLONAZEPAM
     Indication: Product use in unapproved indication
     Dosage: UNK
     Dates: start: 20010101
  5. DEPAKOTE [Concomitant]
     Active Substance: DIVALPROEX SODIUM
     Indication: Product use in unapproved indication
     Dosage: UNK
     Dates: start: 20010101
  6. BISOPROLOL FUMARATE [Concomitant]
     Active Substance: BISOPROLOL FUMARATE
     Indication: Product use in unapproved indication
     Dosage: UNK
     Dates: start: 20150918
  7. HYOSCYAMINE [Concomitant]
     Active Substance: HYOSCYAMINE
     Indication: Product use in unapproved indication
     Dosage: 0010
     Dates: start: 20140924
  8. WELCHOL [Concomitant]
     Active Substance: COLESEVELAM HYDROCHLORIDE
     Indication: Product use in unapproved indication
     Dosage: UNK
     Dates: start: 20140924
  9. ASACOL HD [Concomitant]
     Active Substance: MESALAMINE
     Indication: Product use in unapproved indication
     Dosage: UNK
     Dates: start: 20150902
  10. KARIVA [Concomitant]
     Active Substance: DESOGESTREL\ETHINYL ESTRADIOL
     Indication: Product use in unapproved indication
     Dosage: 28 DAY TABLET
     Dates: start: 20150902
  11. RITALIN LA [Concomitant]
     Active Substance: METHYLPHENIDATE HYDROCHLORIDE
     Indication: Product use in unapproved indication
     Dosage: UNK
     Dates: start: 20150918
  12. FIBERCON [Concomitant]
     Active Substance: CALCIUM POLYCARBOPHIL
     Indication: Product use in unapproved indication
     Dosage: CAPLET
     Dates: start: 20151020
  13. NEXIUM [ESOMEPRAZOLE MAGNESIUM TRIHYDRATE] [Concomitant]
     Indication: Product use in unapproved indication
     Dosage: UNK
     Dates: start: 20100301
  14. MIRALAX [Concomitant]
     Active Substance: POLYETHYLENE GLYCOL 3350
     Indication: Product use in unapproved indication
     Dosage: POWDER PACKET
     Dates: start: 20100301
  15. ACETAMINOPHEN\OXYCODONE HYDROCHLORIDE [Concomitant]
     Active Substance: ACETAMINOPHEN\OXYCODONE HYDROCHLORIDE
     Indication: Product use in unapproved indication
     Dosage: UNK
     Dates: start: 20180217
  16. METHYLPHENIDATE [Concomitant]
     Active Substance: METHYLPHENIDATE
     Indication: Product use in unapproved indication
     Dosage: UNK
     Dates: start: 20170720
  17. SYNTHROID [Concomitant]
     Active Substance: LEVOTHYROXINE SODIUM
     Indication: Product use in unapproved indication
     Dosage: UNK
     Dates: start: 20100310
  18. TYLENOL SINUS SEVERE [Concomitant]
     Active Substance: ACETAMINOPHEN\GUAIFENESIN\PHENYLEPHRINE HYDROCHLORIDE
     Indication: Product use in unapproved indication
     Dosage: UNK
     Dates: start: 20190415

REACTIONS (7)
  - Appendicectomy [Unknown]
  - Surgery [Unknown]
  - Colectomy [Unknown]
  - Cholecystectomy [Unknown]
  - Musculoskeletal disorder [Unknown]
  - Bladder disorder [Unknown]
  - Post procedural complication [Unknown]
